FAERS Safety Report 25598658 (Version 3)
Quarter: 2025Q3

REPORT INFORMATION
  Report Type: Report from Study
  Country: US (occurrence: US)
  Receive Date: 20250723
  Receipt Date: 20250729
  Transmission Date: 20251021
  Serious: Yes (Death, Other)
  Sender: NOVARTIS
  Company Number: US-002147023-NVSC2025US116505

PATIENT
  Sex: Male
  Weight: 77.11 kg

DRUGS (1)
  1. PLUVICTO [Suspect]
     Active Substance: LUTETIUM LU-177 VIPIVOTIDE TETRAXETAN
     Indication: Prostate cancer
     Route: 058
     Dates: start: 20240229, end: 20240711

REACTIONS (6)
  - Cardio-respiratory arrest [Fatal]
  - Craniocerebral injury [Fatal]
  - Subdural haematoma [Unknown]
  - Unresponsive to stimuli [Unknown]
  - Fall [Unknown]
  - Head injury [Unknown]
